FAERS Safety Report 10023491 (Version 1)
Quarter: 2013Q4

REPORT INFORMATION
  Report Type: Report from Study
  Country: DE (occurrence: None)
  Receive Date: 20131231
  Receipt Date: 20131231
  Transmission Date: 20140711
  Serious: Yes (Other)
  Sender: FDA-Public Use
  Company Number: 2013SA125501

PATIENT
  Age: 72 Year
  Sex: Male
  Weight: 73 kg

DRUGS (10)
  1. MULTAQ (DRONEDARONE) / ORAL / TABLET / 400 MILLIGRAM(S) [Suspect]
     Indication: ATRIAL FIBRILLATION
     Route: 048
     Dates: end: 201304
  2. METOPROLOL (METOPROLOL TARTRATE) [Suspect]
     Indication: PRODUCT USED FOR UNKNOWN INDICATION
  3. VITAMNIN K [Concomitant]
  4. RAMIPRIL [Concomitant]
  5. METOPROLOL [Concomitant]
  6. PHENPROCOUMON [Concomitant]
  7. TRAVATAN [Concomitant]
  8. L-THYROXIN [Concomitant]
  9. OMEPRAZOLE [Concomitant]
  10. JUNIK [Concomitant]

REACTIONS (2)
  - Syncope [None]
  - Bradyarrhythmia [None]
